FAERS Safety Report 9144168 (Version 2)
Quarter: 2013Q2

REPORT INFORMATION
  Report Type: Report from Study
  Country: DE (occurrence: DE)
  Receive Date: 20130306
  Receipt Date: 20130610
  Transmission Date: 20140414
  Serious: Yes (Life-Threatening, Hospitalization, Other)
  Sender: FDA-Public Use
  Company Number: DE-ROCHE-787702

PATIENT
  Age: 6 Year
  Sex: Female
  Weight: 18 kg

DRUGS (10)
  1. MABTHERA [Suspect]
     Indication: JUVENILE IDIOPATHIC ARTHRITIS
     Dosage: ONE-TIME APPLICATION FOLLOWED BY A BREAK
     Route: 042
     Dates: start: 20110413, end: 20110413
  2. TOCILIZUMAB [Suspect]
     Indication: JUVENILE IDIOPATHIC ARTHRITIS
     Route: 042
     Dates: start: 20081209, end: 20090525
  3. TOCILIZUMAB [Suspect]
     Route: 042
  4. ENBREL [Suspect]
     Indication: JUVENILE IDIOPATHIC ARTHRITIS
     Route: 065
     Dates: start: 20080429, end: 20080512
  5. ARAVA [Suspect]
     Indication: JUVENILE IDIOPATHIC ARTHRITIS
     Route: 048
  6. ARAVA [Suspect]
     Route: 048
     Dates: start: 20100301, end: 20110512
  7. PREDNISONE [Suspect]
     Indication: JUVENILE IDIOPATHIC ARTHRITIS
     Route: 048
     Dates: start: 20080429
  8. PREDNISONE [Suspect]
     Route: 048
     Dates: start: 2009
  9. OMEPRAZOL [Concomitant]
     Route: 065
     Dates: start: 201003, end: 20101028
  10. IBUPROFEN [Concomitant]
     Route: 065
     Dates: start: 20110316, end: 20110330

REACTIONS (3)
  - Histiocytosis haematophagic [Recovered/Resolved]
  - Arthritis bacterial [Recovered/Resolved]
  - Interstitial lung disease [Recovered/Resolved]
